FAERS Safety Report 21883616 (Version 1)
Quarter: 2023Q1

REPORT INFORMATION
  Report Type: Spontaneous
  Country: US (occurrence: None)
  Receive Date: 20230118
  Receipt Date: 20230118
  Transmission Date: 20230418
  Serious: Yes (Hospitalization)
  Sender: FDA-Public Use
  Company Number: None

PATIENT
  Age: 69 Year
  Sex: Female

DRUGS (1)
  1. EMPAGLIFLOZIN\METFORMIN HYDROCHLORIDE [Suspect]
     Active Substance: EMPAGLIFLOZIN\METFORMIN HYDROCHLORIDE
     Indication: Diabetes mellitus
     Dosage: 12.5 MG BID PO
     Route: 048
     Dates: start: 20220728, end: 20230113

REACTIONS (3)
  - Euglycaemic diabetic ketoacidosis [None]
  - Weight decreased [None]
  - Cough [None]

NARRATIVE: CASE EVENT DATE: 20230113
